FAERS Safety Report 19404171 (Version 1)
Quarter: 2021Q2

REPORT INFORMATION
  Report Type: Spontaneous
  Country: US (occurrence: US)
  Receive Date: 20210610
  Receipt Date: 20210610
  Transmission Date: 20210717
  Serious: Yes (Disabling)
  Sender: FDA-Public Use
  Company Number: None

PATIENT
  Age: 28 Year
  Sex: Female
  Weight: 99.79 kg

DRUGS (3)
  1. ALBUTEROL. [Concomitant]
     Active Substance: ALBUTEROL
  2. ADVAIR HFA [Concomitant]
     Active Substance: FLUTICASONE PROPIONATE\SALMETEROL XINAFOATE
  3. SKYLA [Suspect]
     Active Substance: LEVONORGESTREL
     Dates: start: 20200630, end: 20210531

REACTIONS (11)
  - Pain [None]
  - Fungal infection [None]
  - Pelvic pain [None]
  - Loss of libido [None]
  - Bacterial vulvovaginitis [None]
  - Anxiety [None]
  - Headache [None]
  - Weight increased [None]
  - Palpitations [None]
  - Ovarian cyst [None]
  - Depressed level of consciousness [None]

NARRATIVE: CASE EVENT DATE: 20210520
